FAERS Safety Report 6459128-7 (Version None)
Quarter: 2009Q4

REPORT INFORMATION
  Report Type: 
  Country: None (occurrence: None)
  Receive Date: 20091127
  Receipt Date: 20091120
  Transmission Date: 20100525
  Serious: Yes (Hospitalization, Other)
  Sender: FDA-Public Use
  Company Number: JP-BRISTOL-MYERS SQUIBB COMPANY-14732838

PATIENT
  Age: 68 Year
  Sex: Female

DRUGS (8)
  1. TAXOL [Suspect]
     Indication: NON-SMALL CELL LUNG CANCER
     Dosage: GIVEN FOR 5 DAYS ON 29JUN,06,13,21,27JUL09.
     Route: 041
     Dates: start: 20090629, end: 20090727
  2. PARAPLATIN [Suspect]
     Indication: NON-SMALL CELL LUNG CANCER
     Dosage: GIVEN FOR 5 DAYS ON 29JUN,06,13,21,27JUL09.
     Route: 041
     Dates: start: 20090629, end: 20090727
  3. RADIATION THERAPY [Suspect]
     Indication: NON-SMALL CELL LUNG CANCER
     Dosage: 1DF=40 GY
     Dates: start: 20090629, end: 20090806
  4. FAMOTIDINE [Concomitant]
     Route: 048
  5. PITAVASTATIN CALCIUM [Concomitant]
     Dosage: FORM:TABLET
     Route: 048
  6. AMLODIPINE BESYLATE [Concomitant]
     Dosage: FORM:TABLET
     Route: 048
  7. REBAMIPIDE [Concomitant]
     Dosage: FORM:TABLET
     Route: 048
  8. SODIUM ALGINATE [Concomitant]
     Indication: PROPHYLAXIS
     Route: 048
     Dates: start: 20090701, end: 20090806

REACTIONS (2)
  - NAUSEA [None]
  - PANOPHTHALMITIS [None]
